FAERS Safety Report 6099760-6 (Version None)
Quarter: 2009Q1

REPORT INFORMATION
  Report Type: 
  Country: None (occurrence: None)
  Receive Date: 20090303
  Receipt Date: 20090223
  Transmission Date: 20090719
  Serious: Yes (Hospitalization, Other)
  Sender: FDA-Public Use
  Company Number: US-AMGEN-QUU335335

PATIENT
  Sex: Female

DRUGS (1)
  1. ENBREL [Suspect]
     Indication: PSORIASIS
     Route: 058
     Dates: start: 20050301

REACTIONS (9)
  - ANOREXIA [None]
  - DYSPEPSIA [None]
  - ERUCTATION [None]
  - FLATULENCE [None]
  - GASTRIC BANDING [None]
  - GASTRITIS EROSIVE [None]
  - HELICOBACTER INFECTION [None]
  - POST PROCEDURAL COMPLICATION [None]
  - REGURGITATION [None]
